FAERS Safety Report 6535904-7 (Version None)
Quarter: 2010Q1

REPORT INFORMATION
  Report Type: 
  Country: None (occurrence: None)
  Receive Date: 20100106
  Receipt Date: 20091223
  Transmission Date: 20100710
  Serious: Yes (Hospitalization)
  Sender: FDA-Public Use
  Company Number: 09-PDX10-01046

PATIENT
  Age: 68 Year
  Sex: Male
  Weight: 80.7 kg

DRUGS (3)
  1. PRALATREXATE (INJECTION FOR INFUSION) [Suspect]
     Dosage: 15 MG/M2 (15 MG/M2, 1 IN 2 WK); 10 MG/M2 (10 MG/M2)
     Dates: start: 20091209, end: 20091209
  2. PRALATREXATE (INJECTION FOR INFUSION) [Suspect]
     Dosage: 15 MG/M2 (15 MG/M2, 1 IN 2 WK); 10 MG/M2 (10 MG/M2)
     Dates: start: 20091122
  3. FOLATE [Concomitant]

REACTIONS (4)
  - ASTHENIA [None]
  - ERYTHEMA [None]
  - GROIN PAIN [None]
  - MUCOSAL INFLAMMATION [None]
